FAERS Safety Report 5984248-0 (Version None)
Quarter: 2008Q4

REPORT INFORMATION
  Report Type: 
  Country: None (occurrence: None)
  Receive Date: 20081205
  Receipt Date: 20081205
  Transmission Date: 20090506
  Serious: Yes (Life-Threatening)
  Sender: FDA-Public Use
  Company Number: None

PATIENT
  Age: 54 Year
  Sex: Male
  Weight: 86.1834 kg

DRUGS (2)
  1. GEMFIBROZIL [Suspect]
     Indication: BLOOD CHOLESTEROL INCREASED
     Dosage: 600MG 2 TABKETS 2X DAILY PO
     Route: 048
     Dates: start: 20081121, end: 20081130
  2. GEMFIBROZIL [Suspect]
     Indication: BLOOD TRIGLYCERIDES INCREASED
     Dosage: 600MG 2 TABKETS 2X DAILY PO
     Route: 048
     Dates: start: 20081121, end: 20081130

REACTIONS (6)
  - ACCIDENTAL OVERDOSE [None]
  - DIARRHOEA [None]
  - DIZZINESS [None]
  - DRUG DISPENSING ERROR [None]
  - MEDICATION ERROR [None]
  - MUSCLE FATIGUE [None]
